FAERS Safety Report 5291140-6 (Version None)
Quarter: 2007Q2

REPORT INFORMATION
  Report Type: 
  Country: None (occurrence: None)
  Receive Date: 20070409
  Receipt Date: 20070330
  Transmission Date: 20071010
  Serious: Yes (Hospitalization)
  Sender: FDA-Public Use
  Company Number: US-AVENTIS-200712323US

PATIENT
  Age: 56 Year
  Sex: Female

DRUGS (26)
  1. LANTUS [Suspect]
     Dosage: DOSE: UNK
     Dates: start: 20070305
  2. LANTUS [Suspect]
     Dates: start: 20070301, end: 20070301
  3. LANTUS [Suspect]
     Dosage: DOSE: UNK
     Dates: start: 20070301
  4. LANTUS [Suspect]
     Dates: start: 20070301
  5. OPTICLIK (INSULIN INJECTION PEN) [Suspect]
     Dates: start: 20070305
  6. APIDRA [Suspect]
     Dosage: DOSE: SLIDING SCALE
     Dates: start: 20070305, end: 20070329
  7. APIDRA [Suspect]
     Dosage: DOSE: 10 TID PLUS SLIDING SCALE IN HOSPITAL
     Dates: start: 20070301, end: 20070329
  8. APIDRA [Suspect]
     Dates: start: 20070301
  9. OPTICLIK GREY [Suspect]
     Dates: start: 20070305
  10. OPTICLIK GREY [Suspect]
  11. PREDNISONE [Concomitant]
     Dosage: DOSE: UNK
  12. PROGRAF [Concomitant]
     Dosage: DOSE: UNK
  13. CELLCEPT [Concomitant]
     Dosage: DOSE: UNK
  14. BACTRIM [Concomitant]
     Dosage: DOSE: UNK
  15. MYCELEX [Concomitant]
     Dosage: DOSE: UNK
  16. ZANTAC [Concomitant]
     Dosage: DOSE: UNK
  17. COLACE [Concomitant]
     Dosage: DOSE: UNK
  18. OSCAL                              /00108001/ [Concomitant]
     Dosage: DOSE: UNK
  19. DETROL LA [Concomitant]
     Dosage: DOSE: UNK
  20. ZOLOFT [Concomitant]
     Dosage: DOSE: UNK
  21. REGLAN                             /00041901/ [Concomitant]
     Dosage: DOSE: UNK
  22. XANAX [Concomitant]
     Dosage: DOSE: UNK
  23. NORVASC [Concomitant]
     Dosage: DOSE: UNK
  24. LOMOTIL                            /00034001/ [Concomitant]
     Dosage: DOSE: UNK
  25. NEURONTIN [Concomitant]
     Dosage: DOSE: UNK
  26. PERCOCET                           /00867901/ [Concomitant]
     Dosage: DOSE: UNK

REACTIONS (3)
  - BLOOD GLUCOSE INCREASED [None]
  - IMPAIRED HEALING [None]
  - POSTOPERATIVE WOUND INFECTION [None]
